FAERS Safety Report 5409873-7 (Version None)
Quarter: 2007Q3

REPORT INFORMATION
  Report Type: 
  Country: None (occurrence: None)
  Receive Date: 20070809
  Receipt Date: 20070730
  Transmission Date: 20080115
  Serious: Yes (Other)
  Sender: FDA-Public Use
  Company Number: US-PFIZER INC-2007064050

PATIENT
  Sex: Female
  Weight: 77.1 kg

DRUGS (10)
  1. LIPITOR [Suspect]
     Indication: BLOOD CHOLESTEROL INCREASED
     Dates: start: 20030701, end: 20070701
  2. COUMADIN [Concomitant]
  3. DYAZIDE [Concomitant]
  4. ALTACE [Concomitant]
  5. SYNTHROID [Concomitant]
  6. PROTONIX [Concomitant]
  7. AMITRIPTYLINE HCL [Concomitant]
  8. ACETYLSALICYLIC ACID SRT [Concomitant]
  9. CALCIUM CHLORIDE [Concomitant]
  10. MAGNESIUM SULFATE [Concomitant]

REACTIONS (10)
  - BLOOD CHOLESTEROL INCREASED [None]
  - DIARRHOEA [None]
  - GASTROENTERITIS ROTAVIRUS [None]
  - LOSS OF CONSCIOUSNESS [None]
  - MALAISE [None]
  - MUSCULAR WEAKNESS [None]
  - NAUSEA [None]
  - PROTHROMBIN TIME [None]
  - STOMACH DISCOMFORT [None]
  - VOMITING [None]
